FAERS Safety Report 6744080-7 (Version None)
Quarter: 2010Q2

REPORT INFORMATION
  Report Type: 
  Country: None (occurrence: None)
  Receive Date: 20100527
  Receipt Date: 20100524
  Transmission Date: 20101027
  Serious: Yes (Other)
  Sender: FDA-Public Use
  Company Number: A0861058A

PATIENT
  Sex: Male

DRUGS (12)
  1. LOVAZA [Suspect]
     Indication: DRUG USE FOR UNKNOWN INDICATION
     Dosage: 4G TWICE PER DAY
     Route: 048
     Dates: start: 20070101
  2. UNKNOWN DRUG [Concomitant]
  3. FLOMAX [Concomitant]
  4. FOLIC ACID [Concomitant]
  5. LIALDA [Concomitant]
  6. LISINOPRIL [Concomitant]
  7. SIMVASTATIN [Concomitant]
  8. ASPIRIN [Concomitant]
  9. GLUCOSAMINE CHONDROITIN [Concomitant]
  10. MULTI-VITAMIN [Concomitant]
  11. MULTIMINERAL [Concomitant]
  12. RESVERATROL [Concomitant]

REACTIONS (8)
  - HAEMORRHAGE SUBCUTANEOUS [None]
  - HAEMORRHAGIC DIATHESIS [None]
  - INCREASED TENDENCY TO BRUISE [None]
  - OVERDOSE [None]
  - RASH MACULAR [None]
  - SKIN ATROPHY [None]
  - SKIN DISCOLOURATION [None]
  - WOUND HAEMORRHAGE [None]
